FAERS Safety Report 14694566 (Version 1)
Quarter: 2018Q1

REPORT INFORMATION
  Report Type: Other
  Country: JP (occurrence: JP)
  Receive Date: 20180329
  Receipt Date: 20180329
  Transmission Date: 20180509
  Serious: No
  Sender: FDA-Public Use
  Company Number: JP--2017-JP-000013

PATIENT
  Age: 41 Year
  Sex: Female

DRUGS (2)
  1. METRONIDAZOLE BRAND UNSPECIFIED (VIVIMED) [Suspect]
     Active Substance: METRONIDAZOLE
     Indication: PELVIC ABSCESS
     Dosage: 500MG EVERY 8 HOURS
  2. DORIPENEM. [Concomitant]
     Active Substance: DORIPENEM
     Indication: ANTIBIOTIC THERAPY
     Dosage: 1G EVERY 8 HOUR

REACTIONS (1)
  - Drug ineffective [Unknown]
